FAERS Safety Report 7265074-1 (Version None)
Quarter: 2011Q1

REPORT INFORMATION
  Report Type: 
  Country: None (occurrence: None)
  Receive Date: 20110131
  Receipt Date: 20110120
  Transmission Date: 20110831
  Serious: Yes (Other)
  Sender: FDA-Public Use
  Company Number: FR-JNJFOC-20101203702

PATIENT
  Age: 44 Year
  Sex: Female
  Weight: 59 kg

DRUGS (19)
  1. OROCAL D3 [Concomitant]
     Indication: OSTEOPOROSIS
     Route: 048
  2. REMICADE [Suspect]
     Route: 042
  3. IMODIUM [Concomitant]
     Indication: DIARRHOEA
     Route: 048
  4. NEXIUM [Concomitant]
     Indication: GASTRIC ULCER
     Route: 048
  5. SPECIAFOLDINE [Concomitant]
     Indication: SAPHO SYNDROME
     Route: 048
  6. KETAMINE [Concomitant]
     Indication: PAIN
  7. EFFEXOR [Concomitant]
     Indication: DEPRESSION
     Route: 048
  8. LIBRAX [Concomitant]
     Indication: GASTROINTESTINAL DISORDER
     Route: 048
  9. FOSAVANCE [Concomitant]
     Indication: OSTEOPOROSIS
     Route: 048
  10. REMICADE [Suspect]
     Indication: SAPHO SYNDROME
     Dosage: RECEIVED 32 DOSES
     Route: 042
  11. REMICADE [Suspect]
     Dosage: 13TH INFUSION
     Route: 042
  12. REMICADE [Suspect]
     Route: 042
  13. MORPHINE SULFATE [Concomitant]
     Indication: PAIN
     Route: 048
  14. LIBRAX [Concomitant]
     Indication: ANXIETY
     Route: 048
  15. XYZAL [Concomitant]
     Indication: PREMEDICATION
     Dosage: 2 TABLETS
  16. DIFFU K [Concomitant]
     Route: 048
  17. NOVATREX (METHOTREXATE) [Concomitant]
     Indication: SAPHO SYNDROME
     Route: 048
  18. SOLU-MEDROL [Concomitant]
     Indication: PREMEDICATION
     Route: 042
  19. SPASFON [Concomitant]
     Indication: GASTROINTESTINAL PAIN
     Route: 048

REACTIONS (2)
  - INFUSION RELATED REACTION [None]
  - ASTHMATIC CRISIS [None]
